FAERS Safety Report 7480741-2 (Version None)
Quarter: 2011Q2

REPORT INFORMATION
  Report Type: 
  Country: None (occurrence: None)
  Receive Date: 20110516
  Receipt Date: 20110504
  Transmission Date: 20111010
  Serious: Yes (Other)
  Sender: FDA-Public Use
  Company Number: CA-BAYER-2011-034330

PATIENT
  Age: 31 Year
  Sex: Female

DRUGS (8)
  1. MINOCYCLINE HCL [Concomitant]
     Indication: ACNE
     Dosage: 100 MG, QD
     Route: 048
     Dates: start: 20050101, end: 20100501
  2. IMOVANE [Concomitant]
     Dosage: 5 MG, UNK
  3. WELLBUTRIN [Concomitant]
  4. YAZ [Suspect]
     Indication: PRODUCT USED FOR UNKNOWN INDICATION
     Dosage: UNK
     Dates: start: 20090629, end: 20100507
  5. EFFEXOR [Concomitant]
  6. CYCLOBENZAPRINE [Concomitant]
     Dosage: 10 MG, QS
  7. PROPRANOLOL [Concomitant]
     Dosage: 20 MG, QD
  8. ABILIT [Concomitant]
     Dosage: 2 MG, QD

REACTIONS (2)
  - PREGNANCY ON ORAL CONTRACEPTIVE [None]
  - PREMATURE LABOUR [None]
